FAERS Safety Report 8426926-X (Version None)
Quarter: 2012Q2

REPORT INFORMATION
  Report Type: 
  Country: None (occurrence: None)
  Receive Date: 20120611
  Receipt Date: 20120530
  Transmission Date: 20120825
  Serious: Yes (Life-Threatening, Hospitalization, Other)
  Sender: FDA-Public Use
  Company Number: US-JNJFOC-20120511597

PATIENT
  Sex: Male
  Weight: 104.1 kg

DRUGS (17)
  1. ACETAMINOPHEN [Concomitant]
     Route: 048
     Dates: start: 20120220
  2. ONDANSETRON [Concomitant]
     Indication: NAUSEA
     Dosage: 4 ; AS NEEDED
     Route: 048
     Dates: start: 20120428
  3. LOPERAMIDE [Concomitant]
     Indication: PRODUCT USED FOR UNKNOWN INDICATION
     Dosage: AS NEEDED
     Route: 065
     Dates: start: 20120428
  4. REMICADE [Suspect]
     Route: 042
     Dates: start: 20120320
  5. REMICADE [Suspect]
     Route: 042
     Dates: start: 20120220
  6. TRAMADOL HCL [Concomitant]
     Indication: ABDOMINAL PAIN
     Dosage: AS NEEDED
     Route: 048
     Dates: start: 20120428
  7. REMICADE [Suspect]
     Indication: CROHN'S DISEASE
     Route: 042
     Dates: start: 20120501
  8. AZATHIOPRINE [Concomitant]
     Route: 065
  9. ACETAMINOPHEN [Concomitant]
     Indication: PREMEDICATION
     Route: 048
     Dates: start: 20120207
  10. BUDESONIDE [Concomitant]
     Route: 065
     Dates: start: 20120502
  11. IRON [Concomitant]
     Indication: ANAEMIA
     Route: 065
     Dates: start: 20120407
  12. MULTI-VITAMINS [Concomitant]
     Route: 065
     Dates: start: 20100207
  13. REMICADE [Suspect]
     Route: 042
     Dates: start: 20120207
  14. PROTONIX [Concomitant]
     Indication: GASTRIC ULCER
  15. ZOFRAN [Concomitant]
     Indication: NAUSEA
     Dosage: AS NEEDED
     Route: 065
     Dates: start: 20120428
  16. FLAGYL [Concomitant]
     Indication: DIARRHOEA
     Route: 065
     Dates: start: 20120330
  17. ACETAMINOPHEN [Concomitant]
     Route: 048
     Dates: start: 20120501

REACTIONS (11)
  - FISTULA [None]
  - NAUSEA [None]
  - OXYGEN SATURATION DECREASED [None]
  - HYPERHIDROSIS [None]
  - BLOOD PRESSURE INCREASED [None]
  - TACHYCARDIA [None]
  - FLUSHING [None]
  - DRUG HYPERSENSITIVITY [None]
  - INFUSION RELATED REACTION [None]
  - CHILLS [None]
  - DYSPNOEA [None]
